FAERS Safety Report 9535407 (Version 2)
Quarter: 2013Q4

REPORT INFORMATION
  Report Type: Spontaneous
  Country: FR (occurrence: FR)
  Receive Date: 20130918
  Receipt Date: 20131011
  Transmission Date: 20140711
  Serious: Yes (Hospitalization, Other)
  Sender: FDA-Public Use
  Company Number: FR-ROCHE-1276989

PATIENT
  Sex: 0

DRUGS (4)
  1. LUCENTIS [Suspect]
     Indication: AGE-RELATED MACULAR DEGENERATION
     Route: 050
     Dates: start: 20130618
  2. KARDEGIC [Concomitant]
     Route: 048
  3. TAHOR [Concomitant]
     Route: 048
  4. PARIET [Concomitant]
     Route: 048

REACTIONS (1)
  - Eye infection [Recovered/Resolved]
